FAERS Safety Report 7398103-5 (Version None)
Quarter: 2011Q2

REPORT INFORMATION
  Report Type: 
  Country: None (occurrence: None)
  Receive Date: 20110406
  Receipt Date: 20110329
  Transmission Date: 20111010
  Serious: Yes (Hospitalization)
  Sender: FDA-Public Use
  Company Number: US-AMGEN-USASP2011016859

PATIENT
  Age: 68 Year
  Sex: Male

DRUGS (2)
  1. ENBREL [Suspect]
     Indication: OSTEOARTHRITIS
  2. ENBREL [Suspect]
     Indication: PSORIATIC ARTHROPATHY
     Dosage: 50 MG, QWK
     Dates: start: 20030101

REACTIONS (7)
  - JOINT SWELLING [None]
  - SCIATICA [None]
  - SPINAL OSTEOARTHRITIS [None]
  - ARTHRALGIA [None]
  - EXOSTOSIS [None]
  - BONE CYST [None]
  - OSTEOARTHRITIS [None]
